FAERS Safety Report 7514194-2 (Version None)
Quarter: 2011Q2

REPORT INFORMATION
  Report Type: 
  Country: None (occurrence: None)
  Receive Date: 20110531
  Receipt Date: 20110520
  Transmission Date: 20111010
  Serious: Yes (Hospitalization, Other)
  Sender: FDA-Public Use
  Company Number: DE-GENENTECH-318462

PATIENT
  Sex: Female
  Weight: 78 kg

DRUGS (4)
  1. RITUXIMAB [Suspect]
     Dosage: UNK
     Route: 042
     Dates: start: 20090401, end: 20090401
  2. RITUXIMAB [Suspect]
     Indication: B-CELL LYMPHOMA
     Dosage: 375 MG/M2, UNK
     Route: 042
     Dates: start: 20110307
  3. RITUXIMAB [Suspect]
     Dosage: UNK
     Route: 042
     Dates: start: 20080901, end: 20090301
  4. RITUXIMAB [Suspect]
     Dosage: UNK
     Route: 042
     Dates: start: 20100601, end: 20101201

REACTIONS (4)
  - DIARRHOEA [None]
  - ENTEROCOLITIS INFECTIOUS [None]
  - HAEMATOCHEZIA [None]
  - WHITE BLOOD CELL COUNT DECREASED [None]
